FAERS Safety Report 12570285 (Version 2)
Quarter: 2016Q3

REPORT INFORMATION
  Report Type: Spontaneous
  Country: FR (occurrence: FR)
  Receive Date: 20160719
  Receipt Date: 20160803
  Transmission Date: 20161109
  Serious: Yes (Hospitalization, Disabling)
  Sender: FDA-Public Use
  Company Number: FR-PFIZER INC-2016341147

PATIENT
  Age: 58 Year
  Sex: Female

DRUGS (4)
  1. IMOVANE [Suspect]
     Active Substance: ZOPICLONE
     Indication: DEPRESSION
     Dosage: 7.5 MG, DAILY
     Route: 048
     Dates: end: 201505
  2. EFFEXOR LP [Suspect]
     Active Substance: VENLAFAXINE HYDROCHLORIDE
     Indication: DEPRESSION
     Dosage: 75 MG, DAILY
     Route: 048
     Dates: start: 201307, end: 201505
  3. XANAX [Suspect]
     Active Substance: ALPRAZOLAM
     Indication: DEPRESSION
     Dosage: ONE TABLET IN THE MORNING, HALF A TABLET AT NOON AND ONE TABLET IN THE EVENING
     Route: 048
     Dates: end: 201505
  4. VALDOXAN [Suspect]
     Active Substance: AGOMELATINE
     Indication: DEPRESSION
     Dosage: 25 MG, 1X/DAY
     Route: 048
     Dates: start: 2010, end: 201505

REACTIONS (7)
  - Interstitial lung disease [Recovering/Resolving]
  - Oxygen saturation decreased [Unknown]
  - Acute respiratory failure [Recovered/Resolved]
  - Cyanosis [Unknown]
  - Pulmonary hypertension [Recovering/Resolving]
  - Dyspnoea [Recovering/Resolving]
  - Chronic respiratory failure [Recovering/Resolving]

NARRATIVE: CASE EVENT DATE: 2015
